FAERS Safety Report 25933174 (Version 1)
Quarter: 2025Q4

REPORT INFORMATION
  Report Type: Spontaneous
  Country: CN (occurrence: CN)
  Receive Date: 20251017
  Receipt Date: 20251017
  Transmission Date: 20260117
  Serious: Yes (Hospitalization, Other)
  Sender: AMGEN
  Company Number: CN-AMGEN-CHNSP2025204415

PATIENT
  Age: 8 Year
  Sex: Male

DRUGS (2)
  1. BLINATUMOMAB [Suspect]
     Active Substance: BLINATUMOMAB
     Indication: Acute lymphocytic leukaemia
     Dosage: 0.005 MILLIGRAM/SQ. METER, QD, IN PUMP INJECTION
     Route: 065
     Dates: start: 20251001, end: 20251002
  2. SODIUM CHLORIDE [Concomitant]
     Active Substance: SODIUM CHLORIDE
     Dosage: 100 MILLILITER, IN PUMP INJECTION
     Route: 065
     Dates: start: 20251001, end: 20251002

REACTIONS (5)
  - Loss of consciousness [Recovered/Resolved]
  - Neurological symptom [Recovered/Resolved]
  - Muscle twitching [Recovered/Resolved]
  - Pyrexia [Recovered/Resolved]
  - Chills [Recovered/Resolved]

NARRATIVE: CASE EVENT DATE: 20251002
